FAERS Safety Report 6574340-4 (Version None)
Quarter: 2010Q1

REPORT INFORMATION
  Report Type: 
  Country: None (occurrence: None)
  Receive Date: 20100201
  Receipt Date: 20100121
  Transmission Date: 20100710
  Serious: Yes (Other)
  Sender: FDA-Public Use
  Company Number: 2010SP004375

PATIENT
  Age: 67 Year
  Sex: Female

DRUGS (7)
  1. MIRTAZAPINE [Suspect]
     Indication: DEPRESSION
     Dosage: 15 MG; QD; PO
     Route: 048
     Dates: start: 20091125
  2. PAROXETINE HCL [Concomitant]
  3. HYDROCHLORIDE HYDRATE [Concomitant]
  4. SULPIRIDE [Concomitant]
  5. BROTOZOLAM [Concomitant]
  6. CLOTIAZEPAM [Concomitant]
  7. LORAZEPAM [Concomitant]

REACTIONS (3)
  - ABNORMAL SENSATION IN EYE [None]
  - DRY EYE [None]
  - INJURY CORNEAL [None]
